FAERS Safety Report 6348791-7 (Version None)
Quarter: 2009Q3

REPORT INFORMATION
  Report Type: 
  Country: None (occurrence: None)
  Receive Date: 20090911
  Receipt Date: 20090908
  Transmission Date: 20100115
  Serious: Yes (Other)
  Sender: FDA-Public Use
  Company Number: US-AMGEN-KDL355716

PATIENT
  Sex: Male

DRUGS (2)
  1. PROCRIT [Suspect]
     Indication: RENAL FAILURE CHRONIC
     Dates: start: 20061001
  2. ARANESP [Suspect]
     Indication: RENAL FAILURE CHRONIC
     Dates: start: 20040101, end: 20061001

REACTIONS (2)
  - RECURRENT CANCER [None]
  - SUBCUTANEOUS NODULE [None]
